FAERS Safety Report 19718192 (Version 2)
Quarter: 2021Q3

REPORT INFORMATION
  Report Type: Spontaneous
  Country: US (occurrence: US)
  Receive Date: 20210819
  Receipt Date: 20210824
  Transmission Date: 20211014
  Serious: Yes (Other)
  Sender: FDA-Public Use
  Company Number: US-PFIZER INC-202101023283

PATIENT
  Age: 77 Year
  Sex: Female

DRUGS (2)
  1. EFFEXOR XR [Suspect]
     Active Substance: VENLAFAXINE HYDROCHLORIDE
     Dosage: 150 MG
  2. EFFEXOR XR [Suspect]
     Active Substance: VENLAFAXINE HYDROCHLORIDE
     Dosage: 75 MG

REACTIONS (18)
  - Weight decreased [Unknown]
  - Eating disorder [Unknown]
  - Cognitive disorder [Unknown]
  - Asthenia [Unknown]
  - Fatigue [Unknown]
  - Insomnia [Unknown]
  - Bipolar disorder [Unknown]
  - Feeling abnormal [Unknown]
  - Vision blurred [Unknown]
  - Hypertension [Unknown]
  - Suicidal ideation [Unknown]
  - Seizure [Unknown]
  - Anxiety [Unknown]
  - Confusional state [Unknown]
  - Headache [Unknown]
  - Thyroid disorder [Unknown]
  - Depressed mood [Unknown]
  - Nervousness [Unknown]
